FAERS Safety Report 13938854 (Version 1)
Quarter: 2017Q3

REPORT INFORMATION
  Report Type: Spontaneous
  Country: US (occurrence: US)
  Receive Date: 20170906
  Receipt Date: 20170906
  Transmission Date: 20171127
  Serious: Yes (Disabling)
  Sender: FDA-Public Use
  Company Number: US-ALVOGEN-2017-ALVOGEN-093352

PATIENT
  Sex: Male

DRUGS (2)
  1. ADVAIR HFA [Concomitant]
     Active Substance: FLUTICASONE PROPIONATE\SALMETEROL XINAFOATE
     Indication: BLOOD CHOLESTEROL ABNORMAL
  2. LISINOPRIL. [Suspect]
     Active Substance: LISINOPRIL
     Indication: BLOOD PRESSURE ABNORMAL

REACTIONS (4)
  - Blood pressure decreased [Unknown]
  - Gait disturbance [Unknown]
  - Asthenia [Unknown]
  - Intentional product misuse [Unknown]
